FAERS Safety Report 20863381 (Version 1)
Quarter: 2022Q2

REPORT INFORMATION
  Report Type: Spontaneous
  Country: NO (occurrence: NO)
  Receive Date: 20220523
  Receipt Date: 20220523
  Transmission Date: 20220721
  Serious: Yes (Life-Threatening, Hospitalization, Disabling)
  Sender: FDA-Public Use
  Company Number: None

PATIENT
  Age: 43 Year
  Sex: Male
  Weight: 76 kg

DRUGS (1)
  1. VENLAFAXINE HYDROCHLORIDE [Suspect]
     Active Substance: VENLAFAXINE HYDROCHLORIDE
     Indication: Restlessness
     Dosage: UNK
     Route: 048
     Dates: start: 1999, end: 20190301

REACTIONS (4)
  - Tremor [Recovering/Resolving]
  - Restlessness [Recovering/Resolving]
  - Heart rate increased [Recovering/Resolving]
  - Emotional poverty [Recovering/Resolving]

NARRATIVE: CASE EVENT DATE: 19990101
